FAERS Safety Report 23957195 (Version 1)
Quarter: 2024Q2

REPORT INFORMATION
  Report Type: Report from Study
  Country: CN (occurrence: CN)
  Receive Date: 20240610
  Receipt Date: 20240610
  Transmission Date: 20240716
  Serious: Yes (Death, Other)
  Sender: FDA-Public Use
  Company Number: CN-TAKEDA-2024TUS000320

PATIENT
  Age: 68 Year
  Sex: Male
  Weight: 130 kg

DRUGS (8)
  1. BRENTUXIMAB VEDOTIN [Suspect]
     Active Substance: BRENTUXIMAB VEDOTIN
     Indication: Follicular lymphoma
     Dosage: 100 MG, EVERY 3 WEEKS
     Route: 041
     Dates: start: 20231201
  2. CALCIUM GLUCONATE [Concomitant]
     Active Substance: CALCIUM GLUCONATE
     Indication: Hypocalcaemia
     Dosage: 1 GRAM, BID
     Route: 042
     Dates: start: 20231201, end: 20231201
  3. CALCIUM GLUCONATE [Concomitant]
     Active Substance: CALCIUM GLUCONATE
     Dosage: 1 GRAM, QD
     Route: 042
     Dates: start: 20231204, end: 20231204
  4. LORATADINE [Concomitant]
     Active Substance: LORATADINE
     Indication: Dermatitis allergic
     Dosage: 10 MILLIGRAM, QD
     Route: 048
     Dates: start: 20231129, end: 20231205
  5. PLATELETS [Concomitant]
     Active Substance: HUMAN PLATELET, ALLOGENIC
     Indication: Platelet count decreased
     Dosage: UNK UNK, QD
     Route: 042
     Dates: start: 20231201, end: 20231201
  6. HUMAN RED BLOOD CELL [Concomitant]
     Active Substance: HUMAN RED BLOOD CELL
     Indication: Anaemia
     Dosage: UNK UNK, QD
     Route: 042
     Dates: start: 20231201, end: 20231201
  7. HUMAN RED BLOOD CELL [Concomitant]
     Active Substance: HUMAN RED BLOOD CELL
     Dosage: UNK UNK, QD
     Route: 042
     Dates: start: 20231204, end: 20231204
  8. HUMAN PLASMA [Concomitant]
     Active Substance: HUMAN PLASMA
     Indication: Anaemia
     Dosage: 140 MILLILITER, QD
     Route: 042
     Dates: start: 20231201, end: 20231201

REACTIONS (8)
  - Neoplasm progression [Fatal]
  - Myelosuppression [Not Recovered/Not Resolved]
  - Sepsis [Not Recovered/Not Resolved]
  - Gastrointestinal haemorrhage [Not Recovered/Not Resolved]
  - Ventricular arrhythmia [Not Recovered/Not Resolved]
  - Mouth ulceration [Not Recovered/Not Resolved]
  - Diarrhoea [Not Recovered/Not Resolved]
  - Off label use [Recovered/Resolved]

NARRATIVE: CASE EVENT DATE: 20231201
